FAERS Safety Report 10101121 (Version 5)
Quarter: 2014Q2

REPORT INFORMATION
  Report Type: Spontaneous
  Country: CA (occurrence: CA)
  Receive Date: 20140424
  Receipt Date: 20140620
  Transmission Date: 20141212
  Serious: Yes (Other)
  Sender: FDA-Public Use
  Company Number: CA-AMGEN-CANSP2014028238

PATIENT
  Age: 74 Year
  Sex: Female

DRUGS (1)
  1. PROLIA [Suspect]
     Indication: OSTEOPOROSIS POSTMENOPAUSAL
     Dosage: UNK
     Route: 065
     Dates: start: 20140129

REACTIONS (38)
  - Rash macular [Unknown]
  - Generalised erythema [Unknown]
  - Choking [Recovered/Resolved]
  - Generalised oedema [Unknown]
  - Limb discomfort [Unknown]
  - Burning sensation [Unknown]
  - Heart rate abnormal [Unknown]
  - Headache [Recovered/Resolved]
  - Trismus [Recovered/Resolved]
  - Rhinorrhoea [Recovered/Resolved]
  - Vulvovaginal burning sensation [Unknown]
  - Rash pustular [Recovered/Resolved]
  - Feeling hot [Unknown]
  - Dysuria [Recovering/Resolving]
  - Furuncle [Recovered/Resolved]
  - Red blood cell sedimentation rate abnormal [Unknown]
  - Skin discolouration [Unknown]
  - Paraesthesia [Unknown]
  - Muscle spasms [Recovered/Resolved]
  - Blood viscosity increased [Unknown]
  - Local swelling [Unknown]
  - Pain in jaw [Unknown]
  - Faeces discoloured [Unknown]
  - Abdominal pain upper [Unknown]
  - Asthenia [Unknown]
  - Macule [Unknown]
  - Memory impairment [Unknown]
  - Limb discomfort [Unknown]
  - Blood pressure increased [Unknown]
  - Palpitations [Unknown]
  - Sleep disorder [Unknown]
  - Vertigo [Unknown]
  - Fatigue [Unknown]
  - Pruritus [Unknown]
  - Skin burning sensation [Unknown]
  - Angiopathy [Unknown]
  - Rash [Unknown]
  - Erythema [Recovering/Resolving]
